FAERS Safety Report 4217890 (Version 2)
Quarter: 2012Q4

REPORT INFORMATION
  Report Type: 
  Country: SE (occurrence: SE)
  Receive Date: 20040917
  Receipt Date: 20121120
  Transmission Date: 20130627
  Serious: Yes (Death, Hospitalization)
  Sender: FDA-Public Use
  Company Number: SE-JNJFOC-20040903140

PATIENT
  Age: 59 Year
  Sex: Male

DRUGS (2)
  1. IPREN [Suspect]
     Indication: PYREXIA
     Dosage: approximately 2 g per day
     Route: 048
     Dates: start: 20040102, end: 20040103
  2. ARCOXIA [Suspect]
     Indication: ARTHRITIS
     Route: 048
     Dates: start: 20031215, end: 20040101

REACTIONS (4)
  - Sudden death [Fatal]
  - Thrombocytopenia [Fatal]
  - Erythema multiforme [Fatal]
  - Diabetes mellitus [Fatal]
